FAERS Safety Report 12736697 (Version 1)
Quarter: 2016Q3

REPORT INFORMATION
  Report Type: Spontaneous
  Country: VE (occurrence: VE)
  Receive Date: 20160913
  Receipt Date: 20160913
  Transmission Date: 20161109
  Serious: Yes (Other)
  Sender: FDA-Public Use
  Company Number: PHHY2016VE125382

PATIENT
  Age: 55 Year
  Sex: Male

DRUGS (3)
  1. TRILEPTAL [Suspect]
     Active Substance: OXCARBAZEPINE
     Indication: SEIZURE
     Dosage: (TABLET STRENGTH: 300 MG)
     Route: 048
  2. FENOBARBITAL [Concomitant]
     Active Substance: PHENOBARBITAL
     Indication: SEIZURE
     Dosage: 2 DF, QD (1 OR 2 DAILY)
     Route: 065
  3. TRILEPTAL [Suspect]
     Active Substance: OXCARBAZEPINE
     Dosage: 1200 MG, QD (TABLET STRENGTH: 600 MG)
     Route: 048

REACTIONS (7)
  - Dyspnoea [Unknown]
  - Drooling [Unknown]
  - Loss of consciousness [Unknown]
  - Fall [Unknown]
  - Seizure [Unknown]
  - Cyanosis [Unknown]
  - Tongue biting [Unknown]

NARRATIVE: CASE EVENT DATE: 20160906
